FAERS Safety Report 25037470 (Version 2)
Quarter: 2025Q1

REPORT INFORMATION
  Report Type: Spontaneous
  Country: US (occurrence: US)
  Receive Date: 20250304
  Receipt Date: 20250305
  Transmission Date: 20250408
  Serious: No
  Sender: BIOGEN
  Company Number: US-BIOGEN-2020BI00891782

PATIENT
  Sex: Male

DRUGS (1)
  1. TYSABRI [Suspect]
     Active Substance: NATALIZUMAB
     Indication: Multiple sclerosis
     Route: 050
     Dates: start: 20131209

REACTIONS (5)
  - Therapeutic product effect decreased [Unknown]
  - Mobility decreased [Not Recovered/Not Resolved]
  - Malaise [Unknown]
  - Gait inability [Unknown]
  - Fall [Recovered/Resolved]
